FAERS Safety Report 22658396 (Version 1)
Quarter: 2023Q2

REPORT INFORMATION
  Report Type: Spontaneous
  Country: KR (occurrence: KR)
  Receive Date: 20230630
  Receipt Date: 20230630
  Transmission Date: 20230721
  Serious: Yes (Other)
  Sender: FDA-Public Use
  Company Number: KR-MYLANLABS-2023M1068149

PATIENT
  Sex: Male
  Weight: 62 kg

DRUGS (1)
  1. CELEBREX [Suspect]
     Active Substance: CELECOXIB
     Indication: Lumbar spinal stenosis
     Dosage: 200 MILLIGRAM, QD (200 MILLIGRAM 1 DAY)
     Route: 065
     Dates: start: 20220408, end: 20220415

REACTIONS (2)
  - Aspartate aminotransferase increased [Recovering/Resolving]
  - Off label use [Unknown]

NARRATIVE: CASE EVENT DATE: 20220408
